FAERS Safety Report 5706914-4 (Version None)
Quarter: 2008Q2

REPORT INFORMATION
  Report Type: 
  Country: None (occurrence: None)
  Receive Date: 20080415
  Receipt Date: 20080415
  Transmission Date: 20081010
  Serious: Yes (Other)
  Sender: FDA-Public Use
  Company Number: None

PATIENT
  Age: 55 Year
  Sex: Female
  Weight: 77.1115 kg

DRUGS (1)
  1. LIPITOR [Suspect]
     Indication: BLOOD CHOLESTEROL INCREASED
     Dosage: 40 MG ONCE PER DAY PO
     Route: 048
     Dates: start: 20050101, end: 20070830

REACTIONS (4)
  - ABASIA [None]
  - MOBILITY DECREASED [None]
  - PAIN IN EXTREMITY [None]
  - WEIGHT INCREASED [None]
